FAERS Safety Report 9695592 (Version 1)
Quarter: 2013Q4

REPORT INFORMATION
  Report Type: Report from Study
  Country: GB (occurrence: GB)
  Receive Date: 20131119
  Receipt Date: 20131119
  Transmission Date: 20140711
  Serious: Yes (Death, Other)
  Sender: FDA-Public Use
  Company Number: GB-ROCHE-1306267

PATIENT
  Sex: 0

DRUGS (16)
  1. RITUXIMAB [Suspect]
     Indication: DIFFUSE LARGE B-CELL LYMPHOMA
     Route: 065
  2. RITUXIMAB [Suspect]
     Indication: BURKITT^S LYMPHOMA
  3. CYCLOPHOSPHAMIDE [Suspect]
     Indication: DIFFUSE LARGE B-CELL LYMPHOMA
     Route: 065
  4. CYCLOPHOSPHAMIDE [Suspect]
     Indication: BURKITT^S LYMPHOMA
  5. VINCRISTINE [Suspect]
     Indication: DIFFUSE LARGE B-CELL LYMPHOMA
     Route: 065
  6. VINCRISTINE [Suspect]
     Indication: BURKITT^S LYMPHOMA
  7. DOXORUBICIN [Suspect]
     Indication: BURKITT^S LYMPHOMA
     Route: 065
  8. DOXORUBICIN [Suspect]
     Indication: DIFFUSE LARGE B-CELL LYMPHOMA
  9. METHOTREXATE [Suspect]
     Indication: DIFFUSE LARGE B-CELL LYMPHOMA
     Route: 065
  10. METHOTREXATE [Suspect]
     Indication: BURKITT^S LYMPHOMA
  11. ETOPOSIDE [Suspect]
     Indication: DIFFUSE LARGE B-CELL LYMPHOMA
     Route: 065
  12. ETOPOSIDE [Suspect]
     Indication: BURKITT^S LYMPHOMA
  13. CYTARABINE [Suspect]
     Indication: DIFFUSE LARGE B-CELL LYMPHOMA
     Route: 065
  14. CYTARABINE [Suspect]
     Indication: BURKITT^S LYMPHOMA
  15. IFOSFAMIDE [Suspect]
     Indication: DIFFUSE LARGE B-CELL LYMPHOMA
     Route: 065
  16. IFOSFAMIDE [Suspect]
     Indication: BURKITT^S LYMPHOMA

REACTIONS (9)
  - Neutropenic infection [Fatal]
  - Gastrointestinal haemorrhage [Fatal]
  - Cerebral haemorrhage [Fatal]
  - Intestinal perforation [Fatal]
  - Neutropenia [Unknown]
  - Thrombocytopenia [Unknown]
  - Infection [Unknown]
  - Mucosal inflammation [Unknown]
  - Off label use [Unknown]
